FAERS Safety Report 7913068-2 (Version None)
Quarter: 2011Q4

REPORT INFORMATION
  Report Type: 
  Country: None (occurrence: None)
  Receive Date: 20111114
  Receipt Date: 20111104
  Transmission Date: 20120403
  Serious: Yes (Other)
  Sender: FDA-Public Use
  Company Number: US-BAYER-2011-109412

PATIENT
  Age: 45 Year
  Sex: Female
  Weight: 56.236 kg

DRUGS (3)
  1. YAZ [Suspect]
     Indication: CONTRACEPTION
     Dosage: UNK
     Dates: start: 20080501, end: 20090801
  2. YAZ [Suspect]
     Indication: PREMENSTRUAL SYNDROME
  3. SUCRALFATE [Concomitant]
     Dosage: UNK
     Route: 048
     Dates: start: 20090506

REACTIONS (3)
  - ABDOMINAL PAIN UPPER [None]
  - CHOLECYSTITIS CHRONIC [None]
  - NAUSEA [None]
